FAERS Safety Report 26032631 (Version 1)
Quarter: 2025Q4

REPORT INFORMATION
  Report Type: Spontaneous
  Country: US (occurrence: US)
  Receive Date: 20251112
  Receipt Date: 20251112
  Transmission Date: 20260118
  Serious: Yes (Hospitalization)
  Sender: STRIDES
  Company Number: US-STRIDES PHARMA UK LTD.-2025SP014055

PATIENT
  Age: 2 Decade
  Sex: Male

DRUGS (5)
  1. TACROLIMUS [Suspect]
     Active Substance: TACROLIMUS
     Indication: Immunosuppressant drug therapy
     Dosage: 3 MILLIGRAM, BID
     Route: 065
     Dates: start: 2021
  2. PREDNISOLONE [Suspect]
     Active Substance: PREDNISOLONE
     Indication: Immunosuppressant drug therapy
     Dosage: 20 MILLIGRAM, QD
     Route: 065
     Dates: start: 2021
  3. MYCOPHENOLATE MOFETIL [Suspect]
     Active Substance: MYCOPHENOLATE MOFETIL
     Indication: Immunosuppressant drug therapy
     Dosage: THREE TABLETS EVERY MORNING
     Route: 048
     Dates: start: 2021
  4. MYCOPHENOLATE MOFETIL [Suspect]
     Active Substance: MYCOPHENOLATE MOFETIL
     Dosage: TWO TABLETS EVERY EVENING
     Route: 048
     Dates: start: 2021
  5. NIFEDIPINE [Suspect]
     Active Substance: NIFEDIPINE
     Indication: Procedural hypertension
     Dosage: 30 MILLIGRAM
     Route: 065
     Dates: start: 202206, end: 2024

REACTIONS (6)
  - Gingival hypertrophy [Recovered/Resolved]
  - Tonsillar hypertrophy [Recovered/Resolved]
  - Sleep-related breathing disorder [Recovered/Resolved]
  - Mastication disorder [Recovered/Resolved]
  - Weight decreased [Recovered/Resolved]
  - Off label use [Unknown]

NARRATIVE: CASE EVENT DATE: 20230101
